FAERS Safety Report 20852293 (Version 1)
Quarter: 2022Q2

REPORT INFORMATION
  Report Type: Spontaneous
  Country: HK (occurrence: HK)
  Receive Date: 20220520
  Receipt Date: 20220520
  Transmission Date: 20220720
  Serious: Yes (Other)
  Sender: FDA-Public Use
  Company Number: HK-BAXTER-2022BAX009956

PATIENT
  Age: 24 Year
  Sex: Male

DRUGS (16)
  1. CYCLOPHOSPHAMIDE [Suspect]
     Active Substance: CYCLOPHOSPHAMIDE
     Indication: Acute lymphocytic leukaemia
     Dosage: UNK, CR AFTER FIRST CYCLE, 6 CYCLE
     Route: 065
  2. CYCLOPHOSPHAMIDE [Suspect]
     Active Substance: CYCLOPHOSPHAMIDE
     Indication: Lymphocyte adoptive therapy
     Dosage: UNK FOR 3 DAYS CAR-T CELLS INFUSION
     Route: 065
     Dates: start: 202010
  3. CYCLOPHOSPHAMIDE [Suspect]
     Active Substance: CYCLOPHOSPHAMIDE
     Indication: Lymphodepletion
  4. DOXORUBICIN [Suspect]
     Active Substance: DOXORUBICIN
     Indication: Acute lymphocytic leukaemia
     Dosage: UNK, CR AFTER FIRST CYCLE, 6 CYCLE
     Route: 065
  5. INOTUZUMAB OZOGAMICIN [Suspect]
     Active Substance: INOTUZUMAB OZOGAMICIN
     Indication: Acute lymphocytic leukaemia recurrent
     Dosage: UNK UNK, CYCLICAL 0.8MG/0.5/0.5
     Route: 065
     Dates: start: 202107
  6. INOTUZUMAB OZOGAMICIN [Suspect]
     Active Substance: INOTUZUMAB OZOGAMICIN
     Dosage: UNK, CYCLICAL 0.5MG/0.5/0.5
     Route: 065
     Dates: start: 202108
  7. DEXAMETHASONE [Suspect]
     Active Substance: DEXAMETHASONE
     Indication: Acute lymphocytic leukaemia
     Dosage: UNK, CR AFTER FIRST CYCLE, 6 CYCLE
     Route: 065
  8. DEXAMETHASONE [Suspect]
     Active Substance: DEXAMETHASONE
     Dosage: UNK, CR AFTER FIRST CYCLE
     Route: 065
  9. VINCRISTINE SULFATE [Suspect]
     Active Substance: VINCRISTINE SULFATE
     Indication: Acute lymphocytic leukaemia
     Dosage: UNK, CR AFTER FIRST CYCLE, 6 CYCLE
     Route: 065
  10. ASPARAGINASE [Suspect]
     Active Substance: ASPARAGINASE
     Indication: Acute lymphocytic leukaemia
     Dosage: UNK CR AFTER FIRST CYCLE
     Route: 065
  11. METHOTREXATE [Suspect]
     Active Substance: METHOTREXATE
     Indication: Acute lymphocytic leukaemia
     Dosage: UNK, CR AFTER FIRST CYCLE, 6 CYCLE
     Route: 065
  12. METHOTREXATE [Suspect]
     Active Substance: METHOTREXATE
     Dosage: UNK, CR AFTER FIRST CYCLE
     Route: 065
  13. CYTARABINE [Suspect]
     Active Substance: CYTARABINE
     Indication: Acute lymphocytic leukaemia
     Dosage: UNK, CR AFTER FIRST CYCLE, 6 CYCLE
     Route: 065
  14. TISAGENLECLEUCEL [Suspect]
     Active Substance: TISAGENLECLEUCEL
     Indication: Acute lymphocytic leukaemia
     Dosage: UNK
     Route: 065
     Dates: start: 202010
  15. TISAGENLECLEUCEL [Suspect]
     Active Substance: TISAGENLECLEUCEL
     Dosage: UNK
     Route: 065
     Dates: start: 202106
  16. URSODIOL [Concomitant]
     Active Substance: URSODIOL
     Indication: Venoocclusive disease
     Dosage: UNK
     Route: 065

REACTIONS (15)
  - Hypertransaminasaemia [Unknown]
  - Acute lymphocytic leukaemia recurrent [Unknown]
  - Bone marrow disorder [Unknown]
  - Disease recurrence [Unknown]
  - Plasma cell myeloma [Recovered/Resolved]
  - Disease recurrence [Recovered/Resolved]
  - Cytokine release syndrome [Unknown]
  - Cystitis haemorrhagic [Unknown]
  - Pneumonia fungal [Recovered/Resolved]
  - Ascites [Not Recovered/Not Resolved]
  - Pericardial effusion [Unknown]
  - Weight increased [Unknown]
  - Lymphadenopathy mediastinal [Unknown]
  - Hepatic function abnormal [Unknown]
  - Blood bilirubin increased [Unknown]

NARRATIVE: CASE EVENT DATE: 20200601
